FAERS Safety Report 4852241-7 (Version None)
Quarter: 2005Q4

REPORT INFORMATION
  Report Type: 
  Country: None (occurrence: None)
  Receive Date: 20051213
  Receipt Date: 20051128
  Transmission Date: 20060501
  Serious: Yes (Death)
  Sender: FDA-Public Use
  Company Number: US-AVENTIS-200519884US

PATIENT
  Sex: Female

DRUGS (4)
  1. KETEK [Suspect]
     Indication: SINUSITIS
     Route: 048
     Dates: start: 20051127, end: 20051128
  2. MESTINON [Concomitant]
     Dosage: DOSE: UNK
  3. SALBUTAMOL W/IPRATROPIUM BROMIDE [Concomitant]
     Dosage: DOSE: UNK
  4. PREDNISONE [Concomitant]
     Dosage: DOSE: UNK

REACTIONS (4)
  - DYSPNOEA [None]
  - NASOPHARYNGITIS [None]
  - RESPIRATORY DISORDER [None]
  - RESPIRATORY FAILURE [None]
